FAERS Safety Report 16370961 (Version 1)
Quarter: 2019Q2

REPORT INFORMATION
  Report Type: Spontaneous
  Country: US (occurrence: US)
  Receive Date: 20190530
  Receipt Date: 20190530
  Transmission Date: 20190711
  Serious: No
  Sender: FDA-Public Use
  Company Number: US-INDIVIOR LIMITED-INDV-118435-2019

PATIENT
  Age: 37 Year
  Sex: Female

DRUGS (1)
  1. PERSERIS [Suspect]
     Active Substance: RISPERIDONE
     Indication: SCHIZOPHRENIA
     Dosage: 90 MILLIGRAM, QMO (FIRST INJECTION)
     Route: 058
     Dates: start: 20190312

REACTIONS (1)
  - Injection site extravasation [Recovered/Resolved with Sequelae]

NARRATIVE: CASE EVENT DATE: 20190312
